FAERS Safety Report 5357590-4 (Version None)
Quarter: 2007Q2

REPORT INFORMATION
  Report Type: 
  Country: None (occurrence: None)
  Receive Date: 20070614
  Receipt Date: 20070605
  Transmission Date: 20071010
  Serious: Yes (Hospitalization)
  Sender: FDA-Public Use
  Company Number: US-ELI_LILLY_AND_COMPANY-US200705000784

PATIENT
  Age: 67 Year
  Sex: Female
  Weight: 81.632 kg

DRUGS (6)
  1. BYETTA [Suspect]
     Indication: BLOOD GLUCOSE INCREASED
     Dosage: 5 UG, 2/D
     Route: 058
     Dates: start: 20060801, end: 20061001
  2. BYETTA [Suspect]
     Dosage: 10 UG, 2/D
     Route: 058
     Dates: start: 20061001
  3. DEPAKOTE [Concomitant]
     Indication: HEADACHE
     Dosage: 250 MG, DAILY (1/D)
     Route: 065
     Dates: start: 20070401
  4. DEPAKOTE [Concomitant]
     Dosage: 250 MG, 2/D
     Route: 065
     Dates: start: 20050101, end: 20070401
  5. PREDNISONE TAB [Concomitant]
     Indication: ADRENAL INSUFFICIENCY
     Dosage: 7.5 MG, DAILY (1/D)
     Route: 065
     Dates: start: 20000101
  6. IMODIUM [Concomitant]
     Indication: DIARRHOEA
     Dosage: UNK, DAILY (1/D)
     Route: 065

REACTIONS (7)
  - DIARRHOEA [None]
  - DYSPNOEA [None]
  - EYE DISORDER [None]
  - NAUSEA [None]
  - NON-CARDIAC CHEST PAIN [None]
  - TREMOR [None]
  - WEIGHT DECREASED [None]
